FAERS Safety Report 5169356-9 (Version None)
Quarter: 2006Q4

REPORT INFORMATION
  Report Type: 
  Country: None (occurrence: None)
  Receive Date: 20061211
  Receipt Date: 20061206
  Transmission Date: 20070319
  Serious: Yes (Death)
  Sender: FDA-Public Use
  Company Number: US-BRISTOL-MYERS SQUIBB COMPANY-13604384

PATIENT
  Age: 63 Year
  Sex: Male

DRUGS (3)
  1. ERBITUX [Suspect]
     Indication: NEOPLASM
     Route: 042
     Dates: start: 20061031, end: 20061126
  2. TARCEVA [Suspect]
     Indication: NEOPLASM
     Route: 048
     Dates: start: 20061031, end: 20061126
  3. ZOMETA [Concomitant]
     Dates: start: 20061122, end: 20061122

REACTIONS (4)
  - ACUTE RESPIRATORY DISTRESS SYNDROME [None]
  - MULTI-ORGAN FAILURE [None]
  - PNEUMONIA [None]
  - SEPTIC SHOCK [None]
